FAERS Safety Report 4744341-7 (Version None)
Quarter: 2005Q3

REPORT INFORMATION
  Report Type: 
  Country: None (occurrence: None)
  Receive Date: 20050809
  Receipt Date: 20050727
  Transmission Date: 20060218
  Serious: Yes (Death, Life-Threatening, Hospitalization, Disabling)
  Sender: FDA-Public Use
  Company Number: 2005-01088

PATIENT
  Age: 48 Year
  Sex: Male
  Weight: 56 kg

DRUGS (4)
  1. VELCADE [Suspect]
     Indication: MULTIPLE MYELOMA
     Dosage: 1.00 MG/M2, 2/WEEK, INTRAVENOUS
     Route: 042
     Dates: start: 20050305, end: 20050423
  2. VELCADE [Suspect]
  3. DEXAMETHASONE [Suspect]
     Indication: MULTIPLE MYELOMA
     Dosage: 10.00 MG, BID,
     Dates: start: 20050423, end: 20050424
  4. ZOLEDRONIC ACID (ZOLEDRONIC ACID) [Concomitant]

REACTIONS (18)
  - ALANINE AMINOTRANSFERASE INCREASED [None]
  - ANXIETY [None]
  - ASPARTATE AMINOTRANSFERASE INCREASED [None]
  - CARDIAC ARREST [None]
  - DIPLOPIA [None]
  - DISEASE PROGRESSION [None]
  - DYSPHAGIA [None]
  - FATIGUE [None]
  - HEADACHE [None]
  - INSOMNIA [None]
  - MIGRAINE [None]
  - MUSCLE DISORDER [None]
  - NEUROPATHIC PAIN [None]
  - PAIN IN EXTREMITY [None]
  - PANCYTOPENIA [None]
  - PERIPHERAL SENSORY NEUROPATHY [None]
  - SENSORY LOSS [None]
  - TRANSAMINASES INCREASED [None]
